FAERS Safety Report 4949493-1 (Version None)
Quarter: 2006Q1

REPORT INFORMATION
  Report Type: 
  Country: None (occurrence: None)
  Receive Date: 20060321
  Receipt Date: 20060106
  Transmission Date: 20060701
  Serious: Yes (Hospitalization, Other)
  Sender: FDA-Public Use
  Company Number: US-NOVOPROD-249844

PATIENT
  Age: 5 Week
  Sex: Male
  Weight: 4 kg

DRUGS (8)
  1. NOVOSEVEN [Suspect]
     Indication: INTRAVENTRICULAR HAEMORRHAGE NEONATAL
     Dosage: 150 UG, SINGLE
     Route: 042
     Dates: start: 20051005, end: 20051005
  2. VANCOMYCIN [Concomitant]
     Indication: CENTRAL NERVOUS SYSTEM INFECTION
     Dosage: UNKNOWN
     Route: 042
     Dates: start: 20050901, end: 20051001
  3. FORTAZ [Concomitant]
     Indication: CENTRAL NERVOUS SYSTEM INFECTION
     Dosage: UNKNOWN
     Route: 042
     Dates: start: 20050901, end: 20051001
  4. PHENOBARBITAL TAB [Concomitant]
     Indication: CONVULSION
     Dosage: UNKNOWN
     Route: 042
     Dates: start: 20051001, end: 20051001
  5. DILANTIN [Concomitant]
     Indication: CONVULSION
     Dosage: UNKNOWN
     Route: 042
     Dates: start: 20051001, end: 20051001
  6. BLOOD CELLS, PACKED HUMAN [Concomitant]
     Indication: INTRAVENTRICULAR HAEMORRHAGE NEONATAL
  7. FRESH FROZEN PLASMA [Concomitant]
     Indication: INTRAVENTRICULAR HAEMORRHAGE NEONATAL
  8. PLATELETS [Concomitant]
     Indication: INTRAVENTRICULAR HAEMORRHAGE NEONATAL

REACTIONS (1)
  - TRANSVERSE SINUS THROMBOSIS [None]
